FAERS Safety Report 5234140-4 (Version None)
Quarter: 2007Q1

REPORT INFORMATION
  Report Type: 
  Country: None (occurrence: None)
  Receive Date: 20070208
  Receipt Date: 20070124
  Transmission Date: 20070707
  Serious: Yes (Hospitalization)
  Sender: FDA-Public Use
  Company Number: US-MERCK-0701USA04772

PATIENT
  Age: 55 Year
  Sex: Female

DRUGS (12)
  1. SINGULAIR [Suspect]
     Route: 048
     Dates: start: 20050204
  2. BUMEX [Concomitant]
     Route: 065
  3. POTASSIUM (UNSPECIFIED) [Concomitant]
     Route: 065
  4. PLAVIX [Concomitant]
     Route: 065
  5. COREG [Concomitant]
     Route: 065
  6. ALTACE [Concomitant]
     Route: 065
  7. ZOCOR [Concomitant]
     Route: 048
  8. ASPIRIN [Concomitant]
     Route: 065
  9. LEVOXYL [Concomitant]
     Route: 065
  10. NEXIUM [Concomitant]
     Route: 065
  11. WELLBUTRIN XL [Concomitant]
     Route: 065
  12. CALCIUM (UNSPECIFIED) [Concomitant]
     Route: 065

REACTIONS (3)
  - ADVERSE DRUG REACTION [None]
  - ANGINA PECTORIS [None]
  - RASH [None]
